FAERS Safety Report 11967038 (Version 1)
Quarter: 2016Q1

REPORT INFORMATION
  Report Type: Report from Study
  Country: US (occurrence: US)
  Receive Date: 20160127
  Receipt Date: 20160127
  Transmission Date: 20160526
  Serious: Yes (Death, Hospitalization, Disabling)
  Sender: FDA-Public Use
  Company Number: US-ABBVIE-13P-163-1133601-00

PATIENT
  Sex: Female
  Weight: 42.22 kg

DRUGS (2)
  1. HUMIRA [Suspect]
     Active Substance: ADALIMUMAB
     Indication: RHEUMATOID ARTHRITIS
     Route: 050
  2. HUMIRA [Suspect]
     Active Substance: ADALIMUMAB
     Route: 050

REACTIONS (6)
  - Dementia [Not Recovered/Not Resolved]
  - Fall [Unknown]
  - Gait disturbance [Recovered/Resolved]
  - Renal failure [Fatal]
  - Pain [Recovered/Resolved]
  - Necrotising fasciitis [Fatal]

NARRATIVE: CASE EVENT DATE: 2011
